FAERS Safety Report 5252305-2 (Version None)
Quarter: 2007Q1

REPORT INFORMATION
  Report Type: 
  Country: None (occurrence: None)
  Receive Date: 20070301
  Receipt Date: 20060301
  Transmission Date: 20070707
  Serious: Yes (Other)
  Sender: FDA-Public Use
  Company Number: US-BRISTOL-MYERS SQUIBB COMPANY-13300132

PATIENT
  Age: 41 Year
  Sex: Female

DRUGS (7)
  1. TAXOL [Suspect]
     Route: 042
     Dates: start: 20060216, end: 20060216
  2. HERCEPTIN [Concomitant]
  3. BENADRYL [Concomitant]
     Indication: PREMEDICATION
  4. PEPCID [Concomitant]
     Indication: PREMEDICATION
  5. KYTRIL [Concomitant]
     Indication: PREMEDICATION
  6. ATIVAN [Concomitant]
     Indication: PREMEDICATION
  7. DEXAMETHASONE [Concomitant]
     Indication: PREMEDICATION

REACTIONS (4)
  - EPIGASTRIC DISCOMFORT [None]
  - FACE OEDEMA [None]
  - OCULAR HYPERAEMIA [None]
  - VOMITING [None]
